FAERS Safety Report 6092109-4 (Version None)
Quarter: 2009Q1

REPORT INFORMATION
  Report Type: 
  Country: None (occurrence: None)
  Receive Date: 20090219
  Receipt Date: 20081104
  Transmission Date: 20090719
  Serious: No
  Sender: FDA-Public Use
  Company Number: WAES 0809USA03234

PATIENT
  Age: 55 Year
  Sex: Female

DRUGS (7)
  1. JANUVIA [Suspect]
     Indication: DIABETES MELLITUS
     Dosage: 100 MG/DAILY/PO; 100 MG/DAILY/PO
     Route: 048
     Dates: start: 20080724, end: 20080912
  2. JANUVIA [Suspect]
     Indication: DIABETES MELLITUS
     Dosage: 100 MG/DAILY/PO; 100 MG/DAILY/PO
     Route: 048
     Dates: start: 20080101
  3. ACTOS [Concomitant]
  4. LOTREL [Concomitant]
  5. ZOCOR [Concomitant]
  6. HYDROCHLOROTHIAZIDE [Concomitant]
  7. METFORMIN HCL [Concomitant]

REACTIONS (3)
  - COUGH [None]
  - PRODUCTIVE COUGH [None]
  - WHEEZING [None]
